FAERS Safety Report 4437728-3 (Version None)
Quarter: 2004Q3

REPORT INFORMATION
  Report Type: 
  Country: None (occurrence: None)
  Receive Date: 20040728
  Receipt Date: 20040318
  Transmission Date: 20050211
  Serious: No
  Sender: FDA-Public Use
  Company Number: USA040362480

PATIENT
  Age: 45 Year
  Sex: Female
  Weight: 64 kg

DRUGS (3)
  1. STRATTERA [Suspect]
     Indication: ATTENTION DEFICIT/HYPERACTIVITY DISORDER
     Dosage: 40 MG/L DAY
     Dates: start: 20040301, end: 20040308
  2. STRATTERA [Suspect]
     Indication: DEPRESSION
     Dosage: 40 MG/L DAY
     Dates: start: 20040301, end: 20040308
  3. KLONOPIN [Concomitant]

REACTIONS (5)
  - DIZZINESS [None]
  - FEELING HOT AND COLD [None]
  - HEADACHE [None]
  - NAUSEA [None]
  - URINARY HESITATION [None]
